FAERS Safety Report 9470379 (Version 1)
Quarter: 2013Q3

REPORT INFORMATION
  Report Type: Spontaneous
  Country: US (occurrence: US)
  Receive Date: 20130822
  Receipt Date: 20130822
  Transmission Date: 20140515
  Serious: No
  Sender: FDA-Public Use
  Company Number: US-SANOFI-AVENTIS-2013SA016512

PATIENT
  Age: 63 Year
  Sex: Female
  Weight: 90.9 kg

DRUGS (6)
  1. MULTAQ [Suspect]
     Indication: ATRIAL FIBRILLATION
     Route: 048
     Dates: start: 201209
  2. DILTIAZEM [Concomitant]
     Indication: ATRIAL FIBRILLATION
     Dates: start: 201209
  3. SYNTHROID [Concomitant]
     Dates: start: 201209
  4. WARFARIN [Concomitant]
     Dates: start: 201209
  5. MULTIVITAMINS [Concomitant]
  6. ALL OTHER THERAPEUTIC PRODUCTS [Concomitant]
     Indication: ARTHRALGIA
     Dates: start: 201108

REACTIONS (3)
  - Arthralgia [Not Recovered/Not Resolved]
  - Gait disturbance [Not Recovered/Not Resolved]
  - Pain [Not Recovered/Not Resolved]
